FAERS Safety Report 5306480-1 (Version None)
Quarter: 2007Q2

REPORT INFORMATION
  Report Type: 
  Country: None (occurrence: None)
  Receive Date: 20070416
  Receipt Date: 20070410
  Transmission Date: 20071010
  Serious: Yes (Disabling)
  Sender: FDA-Public Use
  Company Number: OSCN-GE-0704S-0167

PATIENT
  Age: 75 Year
  Sex: Male
  Weight: 74 kg

DRUGS (6)
  1. OMNISCAN [Suspect]
     Indication: ARTERIOSCLEROSIS
     Dosage: SEE IMAGE
     Route: 042
     Dates: start: 20040909, end: 20040909
  2. OMNISCAN [Suspect]
     Indication: PERIPHERAL ARTERIAL OCCLUSIVE DISEASE
     Dosage: SEE IMAGE
     Route: 042
     Dates: start: 20040909, end: 20040909
  3. OMNISCAN [Suspect]
     Indication: ARTERIOSCLEROSIS
     Dosage: SEE IMAGE
     Route: 042
     Dates: start: 20041215, end: 20041215
  4. OMNISCAN [Suspect]
     Indication: PERIPHERAL ARTERIAL OCCLUSIVE DISEASE
     Dosage: SEE IMAGE
     Route: 042
     Dates: start: 20041215, end: 20041215
  5. OMNISCAN [Suspect]
     Indication: ARTERIOSCLEROSIS
     Dosage: SEE IMAGE
     Route: 042
     Dates: start: 20060105, end: 20060105
  6. OMNISCAN [Suspect]
     Indication: PERIPHERAL ARTERIAL OCCLUSIVE DISEASE
     Dosage: SEE IMAGE
     Route: 042
     Dates: start: 20060105, end: 20060105

REACTIONS (1)
  - NEPHROGENIC FIBROSING DERMOPATHY [None]
